FAERS Safety Report 4558197-9 (Version None)
Quarter: 2005Q1

REPORT INFORMATION
  Report Type: 
  Country: None (occurrence: None)
  Receive Date: 20050107
  Receipt Date: 20040915
  Transmission Date: 20050727
  Serious: Yes (Hospitalization)
  Sender: FDA-Public Use
  Company Number: 04P-163-0273574-00

PATIENT
  Sex: Female

DRUGS (1)
  1. OMNICEF [Suspect]

REACTIONS (1)
  - CLOSTRIDIAL INFECTION [None]
